FAERS Safety Report 17620668 (Version 1)
Quarter: 2020Q2

REPORT INFORMATION
  Report Type: Spontaneous
  Country: US (occurrence: US)
  Receive Date: 20200403
  Receipt Date: 20200403
  Transmission Date: 20200713
  Serious: Yes (Other)
  Sender: FDA-Public Use
  Company Number: US-ELI_LILLY_AND_COMPANY-US202003012335

PATIENT
  Sex: Female

DRUGS (8)
  1. HUMULIN R [Suspect]
     Active Substance: INSULIN HUMAN
     Indication: TYPE 2 DIABETES MELLITUS
     Dosage: 75 U, EACH MORNING (BEFORE BREAKFAST)
     Route: 065
     Dates: start: 2005
  2. METFORMIN [Concomitant]
     Active Substance: METFORMIN HYDROCHLORIDE
     Indication: TYPE 2 DIABETES MELLITUS
     Dosage: 500 MG, BID
  3. HUMULIN R [Suspect]
     Active Substance: INSULIN HUMAN
     Dosage: 65 U, DAILY (BEFORE LUNCH)
     Route: 065
     Dates: start: 2005
  4. HUMULIN R U-500 [Suspect]
     Active Substance: INSULIN HUMAN
     Indication: TYPE 2 DIABETES MELLITUS
     Dosage: 75 U, EACH MORNING (BEFORE BREAKFAST)
     Route: 065
     Dates: start: 2017
  5. HUMULIN R U-500 [Suspect]
     Active Substance: INSULIN HUMAN
     Dosage: 75 U, EACH EVENING (BEFORE DINNER)
     Route: 065
     Dates: start: 2017
  6. HUMULIN R [Suspect]
     Active Substance: INSULIN HUMAN
     Dosage: 75 U, EACH EVENING (BEFORE DINNER)
     Route: 065
     Dates: start: 2005
  7. HUMULIN R U-500 [Suspect]
     Active Substance: INSULIN HUMAN
     Dosage: 65 U, DAILY (BEFORE LUNCH)
     Route: 065
     Dates: start: 2017
  8. TRULICITY [Suspect]
     Active Substance: DULAGLUTIDE
     Indication: TYPE 2 DIABETES MELLITUS
     Dosage: 1.5 MG, UNKNOWN
     Route: 065

REACTIONS (3)
  - Cataract [Unknown]
  - Visual impairment [Unknown]
  - Eye haemorrhage [Unknown]

NARRATIVE: CASE EVENT DATE: 2010
